FAERS Safety Report 4565324-6 (Version None)
Quarter: 2005Q1

REPORT INFORMATION
  Report Type: 
  Country: None (occurrence: None)
  Receive Date: 20050126
  Receipt Date: 20050110
  Transmission Date: 20050727
  Serious: Yes (Death, Hospitalization)
  Sender: FDA-Public Use
  Company Number: FR_040403998

PATIENT
  Age: 63 Year
  Sex: Male
  Weight: 60 kg

DRUGS (5)
  1. PEMETREXED [Suspect]
     Indication: PERITONEAL MESOTHELIOMA MALIGNANT
     Dosage: 500 MG/M2 /1 OTHER
     Route: 050
     Dates: start: 20031201, end: 20040331
  2. CISPLATIN [Concomitant]
  3. FOLIC ACID [Concomitant]
  4. VITAMIN B-12 [Concomitant]
  5. DEXAMETHASONE [Concomitant]

REACTIONS (11)
  - APLASIA [None]
  - BONE MARROW DEPRESSION [None]
  - HYPOCALCAEMIA [None]
  - HYPOKALAEMIA [None]
  - HYPOMAGNESAEMIA [None]
  - HYPONATRAEMIA [None]
  - HYPOPHOSPHATAEMIA [None]
  - MALIGNANT NEOPLASM PROGRESSION [None]
  - NEPHRITIS INTERSTITIAL [None]
  - PANCYTOPENIA [None]
  - SUBILEUS [None]
